FAERS Safety Report 17221408 (Version 1)
Quarter: 2020Q1

REPORT INFORMATION
  Report Type: Spontaneous
  Country: GB (occurrence: GB)
  Receive Date: 20200101
  Receipt Date: 20200101
  Transmission Date: 20200409
  Serious: Yes (Disabling)
  Sender: FDA-Public Use
  Company Number: GB-AUROBINDO-AUR-APL-2019-108724

PATIENT
  Age: 10 Month
  Sex: Female
  Weight: 8.9 kg

DRUGS (2)
  1. ATENOLOL. [Suspect]
     Active Substance: ATENOLOL
     Indication: INFANTILE HAEMANGIOMA
     Dosage: 1 MILLIGRAM/KILOGRAM
     Route: 048
     Dates: start: 20191020, end: 201910
  2. ATENOLOL. [Suspect]
     Active Substance: ATENOLOL
     Dosage: 2 MILLIGRAM/KILOGRAM
     Route: 048
     Dates: start: 20191020, end: 20191115

REACTIONS (4)
  - Constipation [Recovered/Resolved]
  - Staring [Recovering/Resolving]
  - Musculoskeletal stiffness [Recovering/Resolving]
  - Sleep disorder [Recovering/Resolving]

NARRATIVE: CASE EVENT DATE: 20191106
